FAERS Safety Report 8008125-9 (Version None)
Quarter: 2011Q4

REPORT INFORMATION
  Report Type: 
  Country: None (occurrence: None)
  Receive Date: 20111222
  Receipt Date: 20111222
  Transmission Date: 20120403
  Serious: No
  Sender: FDA-Public Use
  Company Number: None

PATIENT
  Age: 55 Year
  Sex: Female
  Weight: 54.4316 kg

DRUGS (2)
  1. AMPHETAMINE AND DEXTROAMPHETAMINE SALTS [Suspect]
     Indication: DYSPHORIA
     Dosage: 20MG 4X DAY ORAL
     Route: 048
     Dates: start: 20111001
  2. AMPHETAMINE AND DEXTROAMPHETAMINE SALTS [Suspect]
     Indication: ATTENTION DEFICIT/HYPERACTIVITY DISORDER
     Dosage: 20MG 4X DAY ORAL
     Route: 048
     Dates: start: 20111001

REACTIONS (5)
  - PRODUCT SUBSTITUTION ISSUE [None]
  - DRY MOUTH [None]
  - DRUG INEFFECTIVE [None]
  - CONFUSIONAL STATE [None]
  - HYPERHIDROSIS [None]
